FAERS Safety Report 16815878 (Version 1)
Quarter: 2019Q3

REPORT INFORMATION
  Report Type: Spontaneous
  Country: US (occurrence: US)
  Receive Date: 20190917
  Receipt Date: 20190917
  Transmission Date: 20191005
  Serious: No
  Sender: FDA-Public Use
  Company Number: US-BION-007835

PATIENT
  Age: 80 Year
  Sex: Female
  Weight: 31.75 kg

DRUGS (3)
  1. RESTRIL [Concomitant]
     Indication: SLEEP DISORDER
     Dosage: STRENGTH: 15 MG
  2. ALLEGRA [Concomitant]
     Active Substance: FEXOFENADINE HYDROCHLORIDE
     Dosage: AT NIGHT
  3. ZYRTEC [Suspect]
     Active Substance: CETIRIZINE HYDROCHLORIDE
     Indication: HYPERSENSITIVITY
     Dosage: 1 LIQ GEL
     Route: 048
     Dates: start: 20190218

REACTIONS (1)
  - Therapeutic product effect incomplete [Not Recovered/Not Resolved]
